FAERS Safety Report 24616045 (Version 1)
Quarter: 2024Q4

REPORT INFORMATION
  Report Type: Spontaneous
  Country: IE (occurrence: IE)
  Receive Date: 20241113
  Receipt Date: 20241113
  Transmission Date: 20250115
  Serious: Yes (Hospitalization)
  Sender: EMD SERONO INC
  Company Number: IE-Merck Healthcare KGaA-2024056845

PATIENT
  Sex: Male

DRUGS (1)
  1. BAVENCIO [Suspect]
     Active Substance: AVELUMAB
     Indication: Product used for unknown indication

REACTIONS (4)
  - Palpitations [Unknown]
  - Atrial flutter [Unknown]
  - Immune-mediated myocarditis [Unknown]
  - Dyspnoea [Unknown]
